FAERS Safety Report 9848931 (Version 1)
Quarter: 2014Q1

REPORT INFORMATION
  Report Type: Spontaneous
  Country: US (occurrence: None)
  Receive Date: 20140127
  Receipt Date: 20140127
  Transmission Date: 20141002
  Serious: Yes (Hospitalization)
  Sender: FDA-Public Use
  Company Number: None

PATIENT
  Age: 53 Year
  Sex: Female
  Weight: 63.5 kg

DRUGS (1)
  1. LAMOTRIGINE [Suspect]
     Indication: DEPRESSION
     Dosage: ONE-HALF PILL ONE TIME TAHKEN BY MOUTH
     Dates: start: 20131126, end: 20140119

REACTIONS (11)
  - Chills [None]
  - Pain [None]
  - Headache [None]
  - Nausea [None]
  - Migraine [None]
  - Vomiting [None]
  - Feeling of body temperature change [None]
  - Dehydration [None]
  - Heart rate decreased [None]
  - Aphonia [None]
  - Confusional state [None]
